FAERS Safety Report 14190731 (Version 4)
Quarter: 2019Q1

REPORT INFORMATION
  Report Type: Report from Study
  Country: US (occurrence: US)
  Receive Date: 20171115
  Receipt Date: 20190227
  Transmission Date: 20190417
  Serious: Yes (Other)
  Sender: FDA-Public Use
  Company Number: US-SA-2017SA004346

PATIENT
  Age: 52 Year
  Sex: Female

DRUGS (1)
  1. ALGLUCOSIDASE ALFA [Suspect]
     Active Substance: ALGLUCOSIDASE ALFA
     Indication: GLYCOGEN STORAGE DISEASE TYPE II
     Dosage: DOSE: 1600.00 (UNITS NOT PROVIDED) FREQUENCY: Q2
     Route: 041
     Dates: start: 20170103

REACTIONS (37)
  - Diarrhoea [Not Recovered/Not Resolved]
  - Fatigue [Not Recovered/Not Resolved]
  - Cellulitis [Unknown]
  - Loss of consciousness [Recovering/Resolving]
  - Diaphragmatic paralysis [Not Recovered/Not Resolved]
  - Blood pressure increased [Recovered/Resolved]
  - Nephrolithiasis [Not Recovered/Not Resolved]
  - Appendicectomy [Not Recovered/Not Resolved]
  - Sleep disorder [Unknown]
  - Rotator cuff syndrome [Unknown]
  - Joint injury [Unknown]
  - Limb injury [Recovered/Resolved]
  - Mobility decreased [Unknown]
  - Mobility decreased [Not Recovered/Not Resolved]
  - Vein disorder [Not Recovered/Not Resolved]
  - Vomiting [Not Recovered/Not Resolved]
  - Kidney infection [Not Recovered/Not Resolved]
  - Gait disturbance [Not Recovered/Not Resolved]
  - Ill-defined disorder [Not Recovered/Not Resolved]
  - Areflexia [Unknown]
  - Blood urine present [Not Recovered/Not Resolved]
  - Fall [Recovered/Resolved]
  - Malaise [Not Recovered/Not Resolved]
  - Oxygen saturation decreased [Not Recovered/Not Resolved]
  - Peripheral swelling [Unknown]
  - Cataract [Not Recovered/Not Resolved]
  - Tremor [Recovering/Resolving]
  - Poor venous access [Not Recovered/Not Resolved]
  - Rash [Not Recovered/Not Resolved]
  - Joint swelling [Not Recovered/Not Resolved]
  - Hepatomegaly [Not Recovered/Not Resolved]
  - Limb discomfort [Not Recovered/Not Resolved]
  - Burning sensation [Unknown]
  - Cholecystectomy [Not Recovered/Not Resolved]
  - Neuralgia [Not Recovered/Not Resolved]
  - Decreased appetite [Not Recovered/Not Resolved]
  - Pyrexia [Not Recovered/Not Resolved]

NARRATIVE: CASE EVENT DATE: 2017
